FAERS Safety Report 6678519-2 (Version None)
Quarter: 2010Q2

REPORT INFORMATION
  Report Type: 
  Country: None (occurrence: None)
  Receive Date: 20100413
  Receipt Date: 20100329
  Transmission Date: 20101027
  Serious: No
  Sender: FDA-Public Use
  Company Number: 2009BI027701

PATIENT
  Sex: Female

DRUGS (1)
  1. TYSABRI [Suspect]
     Indication: MULTIPLE SCLEROSIS
     Route: 042
     Dates: start: 20080221

REACTIONS (19)
  - ANIMAL BITE [None]
  - CLUSTER HEADACHE [None]
  - CONFUSIONAL STATE [None]
  - DYSPHAGIA [None]
  - EYE DISORDER [None]
  - EYE INFECTION [None]
  - HALLUCINATION, AUDITORY [None]
  - HALLUCINATION, VISUAL [None]
  - HYPOAESTHESIA [None]
  - INFECTED BITES [None]
  - LUNG INFECTION [None]
  - MELANOCYTIC NAEVUS [None]
  - MEMORY IMPAIRMENT [None]
  - MULTIPLE SCLEROSIS RELAPSE [None]
  - OXYGEN SATURATION DECREASED [None]
  - SLEEP TALKING [None]
  - SPEECH DISORDER [None]
  - SYSTEMIC LUPUS ERYTHEMATOSUS [None]
  - TREMOR [None]
